FAERS Safety Report 7717429-6 (Version None)
Quarter: 2011Q3

REPORT INFORMATION
  Report Type: 
  Country: None (occurrence: None)
  Receive Date: 20110823
  Receipt Date: 20110412
  Transmission Date: 20111222
  Serious: No
  Sender: FDA-Public Use
  Company Number: 20110412CINRY1936

PATIENT
  Age: 45 Year
  Sex: Male

DRUGS (2)
  1. CINRYZE [Suspect]
     Indication: PROPHYLAXIS
  2. CINRYZE [Suspect]
     Indication: HEREDITARY ANGIOEDEMA

REACTIONS (3)
  - SWELLING [None]
  - DEHYDRATION [None]
  - HEREDITARY ANGIOEDEMA [None]
